FAERS Safety Report 5816591-X (Version None)
Quarter: 2008Q3

REPORT INFORMATION
  Report Type: 
  Country: None (occurrence: None)
  Receive Date: 20080721
  Receipt Date: 20080707
  Transmission Date: 20090109
  Serious: Yes (Other)
  Sender: FDA-Public Use
  Company Number: US-ROCHE-576367

PATIENT
  Sex: Female

DRUGS (12)
  1. ZENAPAX [Suspect]
     Dosage: IMMEDIATELY BEFORE TRANSPLANTATION
     Route: 042
  2. ZENAPAX [Suspect]
     Dosage: AT 2, 4, 6 AND 8 WEEKS POST-TRANSPLANT
     Route: 042
  3. SIROLIMUS [Suspect]
     Dosage: LOADING DOSE PRE-TRANSPLANT
     Route: 065
  4. SIROLIMUS [Suspect]
     Route: 065
  5. TACROLIMUS [Suspect]
     Dosage: IMMEDIATELY BEFORE TRANSPLANTATION
     Route: 065
  6. TACROLIMUS [Suspect]
     Dosage: MAINTAINED AT TARGET TROUGH LEVELS OF 3-6 NG/ML.
     Route: 065
  7. ETANERCEPT [Suspect]
     Indication: PANCREAS ISLET CELL TRANSPLANT
     Dosage: PRIOR TO ISLET TRANSPLANTATION
     Route: 042
  8. ETANERCEPT [Suspect]
     Dosage: DAYS 3, 7 AND 10 POST-TRANSPLANT
     Route: 058
  9. EXENATIDE [Suspect]
     Indication: PANCREAS ISLET CELL TRANSPLANT
     Dosage: FOR 1 WEEK WITHIN 60 MINUTES BEFORE AND AFTER AM AND PM MEALS
     Route: 058
  10. EXENATIDE [Suspect]
     Dosage: DOSE INCREASED TO 10 MCG TWICE DAILY FOR A TOTAL OF 6 MONTHS AFTER LAST TRANSPLANT IF TOLERATED.
     Route: 058
  11. ENOXAPARIN SODIUM [Concomitant]
     Dosage: 1 WEEK POST-TRANSPLANT
  12. HEPARIN [Concomitant]
     Dosage: TOTAL DOSE 5000 UNITS PER TRANSPLANT.

REACTIONS (3)
  - MUSCLE NECROSIS [None]
  - STAPHYLOCOCCAL OSTEOMYELITIS [None]
  - TRANSPLANT REJECTION [None]
